FAERS Safety Report 6183766-2 (Version None)
Quarter: 2009Q2

REPORT INFORMATION
  Report Type: 
  Country: None (occurrence: None)
  Receive Date: 20090508
  Receipt Date: 20090130
  Transmission Date: 20091009
  Serious: No
  Sender: FDA-Public Use
  Company Number: A0766134A

PATIENT
  Age: 64 Year
  Sex: Male

DRUGS (5)
  1. ALTABAX [Suspect]
     Indication: STAPHYLOCOCCAL INFECTION
     Route: 061
     Dates: start: 20090130, end: 20090130
  2. CEPHALEXIN [Concomitant]
  3. PIROXICAM [Concomitant]
  4. NORCO [Concomitant]
  5. KLONOPIN [Concomitant]

REACTIONS (1)
  - APPLICATION SITE PAIN [None]
